FAERS Safety Report 10252329 (Version 2)
Quarter: 2014Q3

REPORT INFORMATION
  Report Type: Report from Study
  Country: IL (occurrence: IL)
  Receive Date: 20140623
  Receipt Date: 20140714
  Transmission Date: 20150326
  Serious: Yes (Hospitalization)
  Sender: FDA-Public Use
  Company Number: IL-TEVA-489492ISR

PATIENT
  Sex: Female
  Weight: 69 kg

DRUGS (2)
  1. TARCEVA [Suspect]
     Active Substance: ERLOTINIB HYDROCHLORIDE
     Indication: ADENOCARCINOMA PANCREAS
     Dosage: 100 MILLIGRAM DAILY;
     Route: 048
     Dates: start: 20140101, end: 20140507
  2. GEMCITABINE [Suspect]
     Active Substance: GEMCITABINE\GEMCITABINE HYDROCHLORIDE
     Indication: ADENOCARCINOMA PANCREAS
     Dosage: 1000 MG/M2 OVER 30 MIN Q WK FOR WKS 1-3
     Route: 042
     Dates: start: 20140101, end: 20140507

REACTIONS (2)
  - Pleural effusion [Recovering/Resolving]
  - Fall [Unknown]
